FAERS Safety Report 5700088-1 (Version None)
Quarter: 2008Q2

REPORT INFORMATION
  Report Type: 
  Country: None (occurrence: None)
  Receive Date: 20080410
  Receipt Date: 20080403
  Transmission Date: 20081010
  Serious: Yes (Other)
  Sender: FDA-Public Use
  Company Number: US-ROCHE-556640

PATIENT
  Age: 83 Year
  Sex: Female

DRUGS (2)
  1. IBANDRONIC ACID [Suspect]
     Indication: OSTEOPENIA
     Route: 065
     Dates: start: 20061101
  2. 1 CONCOMITANT DRUG [Concomitant]
     Dosage: DRUG: ERIMIDEX.

REACTIONS (1)
  - RETINAL HAEMORRHAGE [None]
